FAERS Safety Report 15169754 (Version 1)
Quarter: 2018Q3

REPORT INFORMATION
  Report Type: Spontaneous
  Country: US (occurrence: US)
  Receive Date: 20180621
  Receipt Date: 20180621
  Transmission Date: 20181010
  Serious: Yes (Death, Life-Threatening, Hospitalization, Disabling, Other)
  Sender: FDA-Public Use
  Company Number: None

PATIENT
  Age: 33 Year
  Sex: Male
  Weight: 90.72 kg

DRUGS (2)
  1. LIQUID IODINE [Concomitant]
  2. RISPERDAL [Suspect]
     Active Substance: RISPERIDONE
     Indication: BIPOLAR DISORDER
     Dosage: 2 PILLS TWICE DAY MOUTH
     Route: 048

REACTIONS (6)
  - Gastric haemorrhage [None]
  - Schizophrenia [None]
  - Gastric pH decreased [None]
  - Depression [None]
  - Quality of life decreased [None]
  - Stress [None]
